FAERS Safety Report 12954279 (Version 1)
Quarter: 2016Q4

REPORT INFORMATION
  Report Type: Spontaneous
  Country: US (occurrence: US)
  Receive Date: 20161118
  Receipt Date: 20161118
  Transmission Date: 20170207
  Serious: Yes (Hospitalization, Other)
  Sender: FDA-Public Use
  Company Number: US-AMGEN-USASP2016159042

PATIENT
  Age: 71 Year
  Sex: Male

DRUGS (9)
  1. METHOTREXATE. [Concomitant]
     Active Substance: METHOTREXATE
     Dosage: UNK
  2. ENBREL [Suspect]
     Active Substance: ETANERCEPT
     Indication: RHEUMATOID ARTHRITIS
     Dosage: 50 MG, QWK
     Route: 058
  3. AMLODIPINE BESYLATE. [Concomitant]
     Active Substance: AMLODIPINE BESYLATE
     Dosage: UNK
  4. DICLOFENAC [Concomitant]
     Active Substance: DICLOFENAC
     Dosage: UNK
  5. REPATHA [Concomitant]
     Active Substance: EVOLOCUMAB
     Dosage: UNK
  6. AMIODARONE [Concomitant]
     Active Substance: AMIODARONE
     Dosage: UNK
  7. BENAZEPRIL [Concomitant]
     Active Substance: BENAZEPRIL HYDROCHLORIDE
     Dosage: UNK
  8. PRALUENT [Concomitant]
     Active Substance: ALIROCUMAB
     Dosage: UNK
  9. XARELTO [Concomitant]
     Active Substance: RIVAROXABAN
     Dosage: UNK

REACTIONS (3)
  - Blood urine present [Recovered/Resolved]
  - Sepsis [Recovered/Resolved]
  - Knee arthroplasty [Recovered/Resolved]

NARRATIVE: CASE EVENT DATE: 2016
